FAERS Safety Report 4993672-4 (Version None)
Quarter: 2006Q2

REPORT INFORMATION
  Report Type: 
  Country: None (occurrence: None)
  Receive Date: 20060503
  Receipt Date: 20060503
  Transmission Date: 20061013
  Serious: Yes (Hospitalization)
  Sender: FDA-Public Use
  Company Number: None

PATIENT
  Sex: Male
  Weight: 116.8466 kg

DRUGS (31)
  1. RIFAMPIN [Suspect]
     Indication: INFECTION
     Dosage: 300 MG TID PO
     Route: 048
  2. METOPROLOL 100 MG [Suspect]
     Indication: CARDIAC FAILURE CONGESTIVE
     Dosage: 100 MG QID PO
     Route: 048
  3. METOPROLOL 100 MG [Suspect]
     Indication: CORONARY ARTERY DISEASE
     Dosage: 100 MG QID PO
     Route: 048
  4. METOPROLOL 100 MG [Suspect]
     Indication: HYPERTENSION
     Dosage: 100 MG QID PO
     Route: 048
  5. ASPIRIN [Concomitant]
  6. FUROSEMIDE [Concomitant]
  7. SENNA CONC [Concomitant]
  8. SENNOSIDE [Concomitant]
  9. MULTIVITAMIN/MINERALS THERAPEUT CAP [Concomitant]
  10. NIASPAN [Concomitant]
  11. SIMVASTATIN [Concomitant]
  12. HUMULIN R [Concomitant]
  13. NOVOLIN R [Concomitant]
  14. AMIODARONE HCL [Concomitant]
  15. PACERONE [Concomitant]
  16. DIPHENHYDRAMINE HCL [Concomitant]
  17. LISINOPRIL [Concomitant]
  18. OMEPRAZOLE [Concomitant]
  19. HUMULIN N [Concomitant]
  20. NOVOLIN 70/30 [Concomitant]
  21. NPH/REG [Concomitant]
  22. TERAZOSIN HCL [Concomitant]
  23. CLOPIDOGREL BISULFATE [Concomitant]
  24. GUAFENESIN SYRUP [Concomitant]
  25. CITALOPRAM HYDROBROMIDE [Concomitant]
  26. METOPROLOL TARTRATE [Concomitant]
  27. ISOSORBIDE MONONITRATE [Concomitant]
  28. NITROGLYCERIN SL [Concomitant]
  29. COUMADIN [Concomitant]
  30. FLUNISOLIDE [Concomitant]
  31. GABAPENTIN [Concomitant]

REACTIONS (4)
  - ANGINA PECTORIS [None]
  - DRUG DOSE OMISSION [None]
  - DRUG EFFECT DECREASED [None]
  - DRUG INTERACTION [None]
